FAERS Safety Report 19448597 (Version 1)
Quarter: 2021Q2

REPORT INFORMATION
  Report Type: Spontaneous
  Country: US (occurrence: US)
  Receive Date: 20210622
  Receipt Date: 20210622
  Transmission Date: 20210717
  Serious: Yes (Other)
  Sender: FDA-Public Use
  Company Number: US-ALKEM LABORATORIES LIMITED-US-ALKEM-2021-03655

PATIENT
  Age: 35 Year

DRUGS (1)
  1. PREGABALIN. [Suspect]
     Active Substance: PREGABALIN
     Indication: ADJUVANT THERAPY
     Dosage: 10 MILLIGRAM/KILOGRAM, QD
     Route: 065

REACTIONS (1)
  - Generalised tonic-clonic seizure [Unknown]
